FAERS Safety Report 25227025 (Version 1)
Quarter: 2025Q2

REPORT INFORMATION
  Report Type: Spontaneous
  Country: US (occurrence: US)
  Receive Date: 20250422
  Receipt Date: 20250422
  Transmission Date: 20250717
  Serious: Yes (Hospitalization, Other)
  Sender: IPSEN BIOPHARMACEUTICALS, INC.
  Company Number: US-IPSEN Group, Research and Development-2025-09038

PATIENT
  Age: 31 Year
  Sex: Male
  Weight: 88 kg

DRUGS (15)
  1. TAZVERIK [Suspect]
     Active Substance: TAZEMETOSTAT HYDROBROMIDE
     Indication: Soft tissue sarcoma
     Dosage: 800 MG TWICE DAILY
     Route: 048
     Dates: start: 20210810
  2. ACETAMINOPHEN [Concomitant]
     Active Substance: ACETAMINOPHEN
  3. DEXAMETHASONE [Concomitant]
     Active Substance: DEXAMETHASONE
  4. DOCUSATE SODIUM [Concomitant]
     Active Substance: DOCUSATE SODIUM
  5. ELIQUIS [Concomitant]
     Active Substance: APIXABAN
  6. IBUPROFEN [Concomitant]
     Active Substance: IBUPROFEN
  7. LIDOCAINE VISCOUS HCL [Concomitant]
  8. LORAZEPAM [Concomitant]
     Active Substance: LORAZEPAM
  9. MESNA [Concomitant]
     Active Substance: MESNA
  10. METHOCARBAMOL [Concomitant]
     Active Substance: METHOCARBAMOL
  11. MIRTAZAPINE [Concomitant]
     Active Substance: MIRTAZAPINE
  12. NYSTATIN [Concomitant]
     Active Substance: NYSTATIN
  13. OLANZAPINE [Concomitant]
     Active Substance: OLANZAPINE
  14. OXYCODONE HYDROCHLORIDE [Concomitant]
     Active Substance: OXYCODONE HYDROCHLORIDE
  15. PROCHLORPERAZINE MALEATE [Concomitant]
     Active Substance: PROCHLORPERAZINE MALEATE

REACTIONS (3)
  - Hip fracture [Not Recovered/Not Resolved]
  - Internal haemorrhage [Not Recovered/Not Resolved]
  - Hospitalisation [Unknown]
